FAERS Safety Report 6134464-2 (Version None)
Quarter: 2009Q1

REPORT INFORMATION
  Report Type: 
  Country: None (occurrence: None)
  Receive Date: 20090327
  Receipt Date: 20090320
  Transmission Date: 20090719
  Serious: Yes (Congenital Anomaly)
  Sender: FDA-Public Use
  Company Number: CH-JNJCH-2009007711

PATIENT
  Sex: Female
  Weight: 4.43 kg

DRUGS (2)
  1. ROGAINE [Suspect]
     Indication: ALOPECIA
     Dosage: TEXT:1 TIME PER DAY
     Route: 064
     Dates: start: 20070513, end: 20080513
  2. BETAMETHASONE [Suspect]
     Indication: ALOPECIA
     Dosage: TEXT:1 TIME PER DAY
     Route: 064
     Dates: start: 20070513, end: 20080513

REACTIONS (3)
  - DRUG EXPOSURE DURING PREGNANCY [None]
  - URINARY TRACT MALFORMATION [None]
  - VENTRICULAR SEPTAL DEFECT [None]
